FAERS Safety Report 17058265 (Version 2)
Quarter: 2021Q1

REPORT INFORMATION
  Report Type: Report from Study
  Country: US (occurrence: US)
  Receive Date: 20191121
  Receipt Date: 20210118
  Transmission Date: 20210419
  Serious: Yes (Hospitalization, Other)
  Sender: FDA-Public Use
  Company Number: NVSC2019US042590

PATIENT
  Age: 15 Year
  Sex: Female
  Weight: 66.6 kg

DRUGS (3)
  1. TOBRAMYCIN. [Suspect]
     Active Substance: TOBRAMYCIN
     Indication: PSEUDOMONAS INFECTION
     Dosage: 300 MG, BID
     Route: 055
     Dates: start: 20090608, end: 20170929
  2. TOBRAMYCIN. [Suspect]
     Active Substance: TOBRAMYCIN
     Dosage: UNK
     Route: 055
  3. TOBRAMYCIN. [Suspect]
     Active Substance: TOBRAMYCIN
     Dosage: 112 MG, BID
     Route: 055
     Dates: start: 20190901, end: 20191111

REACTIONS (1)
  - Infective pulmonary exacerbation of cystic fibrosis [Recovering/Resolving]

NARRATIVE: CASE EVENT DATE: 20171018
